FAERS Safety Report 6193617-8 (Version None)
Quarter: 2009Q2

REPORT INFORMATION
  Report Type: 
  Country: None (occurrence: None)
  Receive Date: 20090518
  Receipt Date: 20090514
  Transmission Date: 20091009
  Serious: Yes (Hospitalization)
  Sender: FDA-Public Use
  Company Number: DE-WYE-G03679209

PATIENT
  Sex: Female
  Weight: 80 kg

DRUGS (9)
  1. TORISEL [Suspect]
     Indication: RENAL CANCER METASTATIC
     Route: 042
     Dates: start: 20080916, end: 20081216
  2. TORISEL [Suspect]
     Route: 042
     Dates: start: 20090106, end: 20090113
  3. TORISEL [Suspect]
     Route: 042
     Dates: start: 20090210, end: 20090210
  4. TORISEL [Suspect]
     Route: 042
     Dates: start: 20090310, end: 20090421
  5. FENISTIL [Concomitant]
     Indication: PREMEDICATION
     Route: 042
     Dates: start: 20080916, end: 20090421
  6. PANTOZOL [Concomitant]
  7. NOVALGIN [Concomitant]
     Dosage: WHEN REQUIRED
  8. METOPROLOL [Concomitant]
  9. LEVOTHYROXINE SODIUM [Concomitant]

REACTIONS (1)
  - DIVERTICULITIS [None]
